FAERS Safety Report 11501726 (Version 1)
Quarter: 2015Q3

REPORT INFORMATION
  Report Type: Spontaneous
  Country: US (occurrence: US)
  Receive Date: 20150914
  Receipt Date: 20150914
  Transmission Date: 20151125
  Serious: No
  Sender: FDA-Public Use
  Company Number: US-GLAXOSMITHKLINE-US2015130421

PATIENT
  Age: 77 Year
  Sex: Male

DRUGS (10)
  1. VITAMIN C [Concomitant]
     Active Substance: ASCORBIC ACID
  2. VITAMIN B12 [Concomitant]
     Active Substance: CYANOCOBALAMIN
  3. VENTOLIN HFA [Suspect]
     Active Substance: ALBUTEROL SULFATE
     Indication: BRONCHITIS
     Dosage: 2 PUFF(S), BID
     Route: 055
  4. ALBUTEROL INHALATIONAL POWDER [Suspect]
     Active Substance: ALBUTEROL
     Indication: PRODUCT USED FOR UNKNOWN INDICATION
     Dosage: UNK
     Route: 055
  5. ASPIRIN. [Concomitant]
     Active Substance: ASPIRIN
  6. METOPROLOL [Concomitant]
     Active Substance: METOPROLOL
  7. CRESTOR [Concomitant]
     Active Substance: ROSUVASTATIN CALCIUM
  8. COUMADIN [Concomitant]
     Active Substance: WARFARIN SODIUM
  9. LOSARTAN. [Concomitant]
     Active Substance: LOSARTAN
  10. DILTIAZEM [Concomitant]
     Active Substance: DILTIAZEM

REACTIONS (4)
  - Expired product administered [Unknown]
  - Device use error [Unknown]
  - Drug ineffective [Recovered/Resolved]
  - Thrombosis [Recovering/Resolving]

NARRATIVE: CASE EVENT DATE: 201507
